FAERS Safety Report 24173060 (Version 2)
Quarter: 2024Q3

REPORT INFORMATION
  Report Type: Spontaneous
  Country: US (occurrence: US)
  Receive Date: 20240805
  Receipt Date: 20240905
  Transmission Date: 20241016
  Serious: No
  Sender: AVERITAS
  Company Number: US-GRUNENTHAL-2024-123769

PATIENT
  Age: 81 Year
  Sex: Male

DRUGS (1)
  1. QUTENZA [Suspect]
     Active Substance: CAPSAICIN
     Indication: Diabetic neuropathy
     Dosage: 2 DOSAGE FORM, ONCE
     Route: 061
     Dates: start: 20240801, end: 20240801

REACTIONS (2)
  - Application site pain [Unknown]
  - Application site pain [Unknown]

NARRATIVE: CASE EVENT DATE: 20240801
